FAERS Safety Report 12542017 (Version 1)
Quarter: 2016Q3

REPORT INFORMATION
  Report Type: Spontaneous
  Country: GB (occurrence: GB)
  Receive Date: 20160708
  Receipt Date: 20160708
  Transmission Date: 20161109
  Serious: Yes (Other)
  Sender: FDA-Public Use
  Company Number: PHHY2016GB090219

PATIENT
  Age: 83 Year
  Sex: Female

DRUGS (2)
  1. TOPIRAMATE. [Suspect]
     Active Substance: TOPIRAMATE
     Dosage: 100 MG, BID
     Route: 048
  2. TOPIRAMATE. [Suspect]
     Active Substance: TOPIRAMATE
     Indication: ESSENTIAL TREMOR
     Dosage: 25 MG, QD, AT NIGHT
     Route: 048

REACTIONS (19)
  - Joint swelling [Unknown]
  - Pancreatic cyst [Unknown]
  - Urinary incontinence [Unknown]
  - Dysphonia [Unknown]
  - Constipation [Unknown]
  - Hypokinesia [Unknown]
  - Anal incontinence [Recovered/Resolved]
  - Abdominal pain [Unknown]
  - Communication disorder [Unknown]
  - Poor quality sleep [Unknown]
  - Renal cyst [Unknown]
  - Pruritus [Unknown]
  - Diarrhoea [Unknown]
  - Cardiovascular disorder [Unknown]
  - Palpitations [Unknown]
  - Dysgraphia [Unknown]
  - Gingival bleeding [Unknown]
  - Hepatic enzyme increased [Unknown]
  - Cough [Unknown]

NARRATIVE: CASE EVENT DATE: 2014
